FAERS Safety Report 10675259 (Version 1)
Quarter: 2014Q4

REPORT INFORMATION
  Report Type: Spontaneous
  Country: US (occurrence: US)
  Receive Date: 20141224
  Receipt Date: 20141224
  Transmission Date: 20150529
  Serious: Yes (Hospitalization)
  Sender: FDA-Public Use
  Company Number: PHHY2014US164704

PATIENT
  Age: 23 Year
  Sex: Male

DRUGS (1)
  1. DIPHENHYDRAMINE [Suspect]
     Active Substance: DIPHENHYDRAMINE
     Indication: PRODUCT USED FOR UNKNOWN INDICATION
     Route: 048

REACTIONS (18)
  - Areflexia [Unknown]
  - Toxicity to various agents [Unknown]
  - Dry skin [Unknown]
  - Unresponsive to stimuli [Unknown]
  - Sinus tachycardia [Unknown]
  - Depressed level of consciousness [Unknown]
  - Overdose [Unknown]
  - Blood pressure decreased [Unknown]
  - Electrocardiogram QRS complex shortened [Recovering/Resolving]
  - Ventricular extrasystoles [Unknown]
  - Blood lactic acid increased [Unknown]
  - Heart rate increased [Unknown]
  - Lipase increased [Unknown]
  - Electrocardiogram QT prolonged [Unknown]
  - Generalised tonic-clonic seizure [Unknown]
  - Tachycardia [Unknown]
  - Pupillary reflex impaired [Unknown]
  - Hypokalaemia [Unknown]
